FAERS Safety Report 16381406 (Version 1)
Quarter: 2019Q2

REPORT INFORMATION
  Report Type: Spontaneous
  Country: US (occurrence: US)
  Receive Date: 20190603
  Receipt Date: 20190603
  Transmission Date: 20190711
  Serious: No
  Sender: FDA-Public Use
  Company Number: US-LUPIN PHARMACEUTICALS INC.-2019-02609

PATIENT
  Sex: Female

DRUGS (1)
  1. DICLOFENAC SODIUM TOPICAL SOLUTION, 1.5% [Suspect]
     Active Substance: DICLOFENAC SODIUM
     Indication: ARTHRALGIA
     Dosage: 40 DROP, QID
     Route: 065
     Dates: start: 20190421, end: 20190421

REACTIONS (3)
  - Dermal absorption impaired [Unknown]
  - Product dispensing issue [Unknown]
  - Pruritus [Not Recovered/Not Resolved]

NARRATIVE: CASE EVENT DATE: 20190421
